FAERS Safety Report 6190127-9 (Version None)
Quarter: 2009Q2

REPORT INFORMATION
  Report Type: 
  Country: None (occurrence: None)
  Receive Date: 20090514
  Receipt Date: 20090505
  Transmission Date: 20091009
  Serious: Yes (Death)
  Sender: FDA-Public Use
  Company Number: CA-NOVOPROD-286647

PATIENT
  Age: 65 Year
  Sex: Male
  Weight: 140 kg

DRUGS (6)
  1. INSULIN DETEMIR 2.4 MOL/L [Suspect]
     Indication: TYPE 2 DIABETES MELLITUS
     Dosage: 46 IU, QD
     Route: 058
     Dates: start: 20090303
  2. FELODIPINE [Concomitant]
     Dosage: 5 G, QD
     Route: 048
     Dates: start: 19980521, end: 20090425
  3. ATENOLOL [Concomitant]
     Dosage: 50 G, QD
     Route: 048
     Dates: start: 19920102, end: 20090425
  4. LIPITOR [Concomitant]
     Dosage: 40 G, QD
     Route: 048
     Dates: start: 19970904, end: 20090425
  5. METFORMIN HCL [Concomitant]
     Dosage: 1500 G, QD
     Route: 048
     Dates: start: 20070618, end: 20090425
  6. DIABETA [Concomitant]
     Dosage: 15 G, QD
     Route: 048
     Dates: start: 20070618, end: 20090303

REACTIONS (1)
  - DEATH [None]
